FAERS Safety Report 8394327-9 (Version None)
Quarter: 2012Q2

REPORT INFORMATION
  Report Type: 
  Country: None (occurrence: None)
  Receive Date: 20120530
  Receipt Date: 20120522
  Transmission Date: 20120825
  Serious: Yes (Other)
  Sender: FDA-Public Use
  Company Number: DE-GENZYME-THYR-1000711

PATIENT

DRUGS (2)
  1. LEVOTHYROXINE SODIUM [Concomitant]
     Indication: PRODUCT USED FOR UNKNOWN INDICATION
     Dosage: 125 UNK, UNK
     Route: 065
  2. THYROGEN [Suspect]
     Indication: PRODUCT USED FOR UNKNOWN INDICATION
     Dosage: UNK, ONCE
     Route: 030
     Dates: start: 20120521, end: 20120521

REACTIONS (1)
  - HYPERSENSITIVITY [None]
